FAERS Safety Report 8173603-9 (Version None)
Quarter: 2012Q1

REPORT INFORMATION
  Report Type: 
  Country: None (occurrence: None)
  Receive Date: 20120229
  Receipt Date: 20120227
  Transmission Date: 20120608
  Serious: Yes (Disabling)
  Sender: FDA-Public Use
  Company Number: US-PFIZER INC-2012052783

PATIENT
  Sex: Female
  Weight: 90.703 kg

DRUGS (13)
  1. SYNTHROID [Suspect]
     Indication: THYROID DISORDER
     Dosage: 0.150 MG, DAILY
     Dates: start: 19660101
  2. VITAMIN D [Concomitant]
     Dosage: 50000 IU, WEEKLY
  3. VITAMIN E [Concomitant]
     Dosage: UNK
  4. LIPITOR [Suspect]
     Indication: BLOOD TRIGLYCERIDES INCREASED
     Dosage: 20 MG, DAILY
     Dates: end: 20111201
  5. GLYBURIDE [Concomitant]
     Indication: DIABETES MELLITUS
     Dosage: UNK,3MG HALF A TABLET DAILY
  6. CELEBREX [Concomitant]
     Indication: BACK PAIN
  7. HYDROCODONE [Concomitant]
     Indication: PAIN
     Dosage: 500 MG, 4X/DAY
  8. GLUCOPHAGE [Concomitant]
     Indication: DIABETES MELLITUS
     Dosage: 1000 MG, 2X/DAY
  9. CELEBREX [Concomitant]
     Indication: PAIN IN EXTREMITY
     Dosage: 200 MG, DAILY
  10. ROBAXIN [Concomitant]
     Indication: MUSCLE SPASMS
     Dosage: 750 MG, 3X/DAY
  11. ALPRAZOLAM [Concomitant]
     Indication: ANXIETY
     Dosage: 0.5 MG, DAILY
  12. CALCIUM [Concomitant]
     Dosage: UNK,DAILY
  13. FISH OIL [Concomitant]
     Dosage: UNK

REACTIONS (4)
  - LIMB INJURY [None]
  - PAIN IN EXTREMITY [None]
  - BACK PAIN [None]
  - HYPERTENSION [None]
